FAERS Safety Report 9160104 (Version 4)
Quarter: 2013Q2

REPORT INFORMATION
  Report Type: Spontaneous
  Country: FR (occurrence: FR)
  Receive Date: 20130313
  Receipt Date: 20130528
  Transmission Date: 20140414
  Serious: Yes (Life-Threatening, Hospitalization, Other)
  Sender: FDA-Public Use
  Company Number: FR-JNJFOC-20130303121

PATIENT
  Age: 62 Year
  Sex: Male

DRUGS (5)
  1. XARELTO [Suspect]
     Indication: THROMBOSIS PROPHYLAXIS
     Route: 048
     Dates: start: 20121103, end: 20130122
  2. PREVISCAN (FLUINDIONE) [Concomitant]
     Route: 065
     Dates: end: 20121029
  3. PREVISCAN (FLUINDIONE) [Concomitant]
     Route: 065
     Dates: start: 20130123
  4. TEMERIT [Concomitant]
     Route: 065
     Dates: start: 2010
  5. IMODIUM [Concomitant]
     Route: 065

REACTIONS (4)
  - Pulmonary embolism [Recovered/Resolved]
  - Myocardial infarction [Unknown]
  - Deep vein thrombosis [Unknown]
  - Drug ineffective [Unknown]
